FAERS Safety Report 17199474 (Version 1)
Quarter: 2019Q4

REPORT INFORMATION
  Report Type: Report from Study
  Country: US (occurrence: US)
  Receive Date: 20191226
  Receipt Date: 20191226
  Transmission Date: 20200122
  Serious: No
  Sender: FDA-Public Use
  Company Number: NVSC2019US079411

PATIENT
  Sex: Female
  Weight: 77.11 kg

DRUGS (4)
  1. PLAQUENIL [Concomitant]
     Active Substance: HYDROXYCHLOROQUINE SULFATE
     Indication: PSORIATIC ARTHROPATHY
     Dosage: 600 MG, QD
     Route: 065
     Dates: start: 20181016
  2. COSENTYX [Suspect]
     Active Substance: SECUKINUMAB
     Indication: PSORIATIC ARTHROPATHY
     Dosage: 150 MG, QMO (VIAL)
     Route: 058
     Dates: start: 20190130, end: 20190426
  3. COSENTYX [Suspect]
     Active Substance: SECUKINUMAB
     Dosage: 150 MG, QMO (VIAL)
     Route: 058
     Dates: start: 20190506
  4. PREDNISONE. [Concomitant]
     Active Substance: PREDNISONE
     Indication: PSORIATIC ARTHROPATHY
     Dosage: 10 MG, QD
     Route: 065
     Dates: start: 20181123

REACTIONS (1)
  - No adverse event [Unknown]
